FAERS Safety Report 19014877 (Version 1)
Quarter: 2021Q1

REPORT INFORMATION
  Report Type: Spontaneous
  Country: US (occurrence: US)
  Receive Date: 20210317
  Receipt Date: 20210317
  Transmission Date: 20210420
  Serious: Yes (Other)
  Sender: FDA-Public Use
  Company Number: US-BRISTOL-MYERS SQUIBB COMPANY-BMS-2021-022924

PATIENT
  Age: 70 Year
  Sex: Female

DRUGS (1)
  1. NIVOLUMAB [Suspect]
     Active Substance: NIVOLUMAB
     Indication: LUNG SQUAMOUS CELL CARCINOMA STAGE III
     Dosage: UNK
     Route: 065
     Dates: start: 201703, end: 201710

REACTIONS (2)
  - Colitis [Unknown]
  - Arthralgia [Unknown]
